FAERS Safety Report 12883935 (Version 1)
Quarter: 2016Q4

REPORT INFORMATION
  Report Type: Spontaneous
  Country: US (occurrence: US)
  Receive Date: 20161024
  Receipt Date: 20161024
  Transmission Date: 20170207
  Serious: Yes (Other)
  Sender: FDA-Public Use
  Company Number: None

PATIENT
  Sex: Male

DRUGS (2)
  1. COSENTYX [Suspect]
     Active Substance: SECUKINUMAB
     Indication: JUVENILE PSORIATIC ARTHRITIS
     Dosage: Q4WEEKS
     Route: 058
     Dates: start: 201510
  2. COSENTYX [Suspect]
     Active Substance: SECUKINUMAB
     Indication: PSORIASIS
     Dosage: Q4WEEKS
     Route: 058
     Dates: start: 201510

REACTIONS (3)
  - Eye infection [None]
  - Therapy cessation [None]
  - Cystitis [None]
